FAERS Safety Report 7295287-4 (Version None)
Quarter: 2011Q1

REPORT INFORMATION
  Report Type: 
  Country: None (occurrence: None)
  Receive Date: 20110216
  Receipt Date: 20110121
  Transmission Date: 20110831
  Serious: No
  Sender: FDA-Public Use
  Company Number: US-B.I. PHARMACEUTICALS,INC./RIDGEFIELD-2011-BP-02204BP

PATIENT
  Sex: Male

DRUGS (8)
  1. VENTOLIN [Concomitant]
     Route: 055
  2. CLARITIN [Concomitant]
     Indication: HYPERSENSITIVITY
     Dosage: 10 MG
     Route: 048
  3. LISINOPRIL [Concomitant]
     Indication: HYPERTENSION
     Dosage: 20 MG
     Route: 048
     Dates: start: 20080801
  4. ZOCOR [Concomitant]
     Indication: BLOOD CHOLESTEROL INCREASED
     Dosage: 20 MG
     Route: 048
     Dates: start: 20080101
  5. ZOCOR [Concomitant]
     Indication: CARDIAC DISORDER
  6. NORVASC [Concomitant]
     Indication: HYPERTENSION
     Dosage: 10 MG
     Route: 048
     Dates: start: 20030101
  7. PRADAXA [Suspect]
     Indication: ANTICOAGULANT THERAPY
     Dosage: 300 MG
     Route: 048
     Dates: start: 20110121
  8. ADVAIR DISC [Concomitant]
     Indication: ASTHMA
     Route: 055
     Dates: start: 20070101

REACTIONS (1)
  - DIZZINESS [None]
